FAERS Safety Report 6032113-5 (Version None)
Quarter: 2009Q1

REPORT INFORMATION
  Report Type: 
  Country: None (occurrence: None)
  Receive Date: 20090107
  Receipt Date: 20081226
  Transmission Date: 20090719
  Serious: No
  Sender: FDA-Public Use
  Company Number: 2008-188581-NL

PATIENT
  Age: 67 Year
  Sex: Male

DRUGS (15)
  1. ROCURONIUM BROMIDE [Suspect]
     Indication: MUSCLE RELAXANT THERAPY
     Dosage: 40 MG ONCE/10 MG ONCE/10 MG ONCE/10 MG ONCE INTRAVENOUS (NOS)
     Route: 042
     Dates: start: 20081215, end: 20081215
  2. CROTAMITON [Concomitant]
  3. HEPARIN [Concomitant]
  4. HYDROXYZINE HYDROCHLORIDE [Concomitant]
  5. FULCALIQ 1 [Concomitant]
  6. ELEMENMIC [Concomitant]
  7. CEFMETAZOLE SODIUM [Concomitant]
  8. THIAMYLAL SODIUM [Concomitant]
  9. FENTANYL [Concomitant]
  10. EPHEDRIN [Concomitant]
  11. NEOSTIGMINE METILSULFATE [Concomitant]
  12. DROPERIDOL [Concomitant]
  13. ROPIVACAINE [Concomitant]
  14. MORPHINE HYDROCHLORIDE [Concomitant]
  15. VEEN-F [Concomitant]

REACTIONS (2)
  - HYPOTONIA [None]
  - RESPIRATORY ARREST [None]
